FAERS Safety Report 13887852 (Version 1)
Quarter: 2017Q3

REPORT INFORMATION
  Report Type: Spontaneous
  Country: GB (occurrence: GB)
  Receive Date: 20170821
  Receipt Date: 20170821
  Transmission Date: 20171127
  Serious: Yes (Other)
  Sender: FDA-Public Use
  Company Number: GB-ALLERGAN-1735541US

PATIENT
  Age: 46 Year
  Sex: Female
  Weight: 65.3 kg

DRUGS (11)
  1. CONSTELLA [Suspect]
     Active Substance: LINACLOTIDE
     Indication: CONSTIPATION
     Dosage: 290 MG, UNK
     Route: 048
     Dates: start: 20170805, end: 201708
  2. CONSTELLA [Suspect]
     Active Substance: LINACLOTIDE
     Indication: IMPAIRED GASTRIC EMPTYING
  3. CLONAZEPAMUM [Concomitant]
  4. METFORMIN HYDROCHLORIDE. [Concomitant]
     Active Substance: METFORMIN HYDROCHLORIDE
  5. ORAMORPH [Concomitant]
     Active Substance: MORPHINE SULFATE
  6. BUSCOPAN [Concomitant]
     Active Substance: BUTYLSCOPOLAMINE BROMIDE
  7. IRON [Concomitant]
     Active Substance: IRON
  8. NITROFURANTOIN. [Concomitant]
     Active Substance: NITROFURANTOIN
     Indication: ANTIBIOTIC THERAPY
  9. PARACETAMOL [Concomitant]
     Active Substance: ACETAMINOPHEN
     Dosage: 500 MG, UNK
  10. MST CONTINUS [Concomitant]
     Active Substance: MORPHINE SULFATE
  11. WARFARIN SODIUM. [Concomitant]
     Active Substance: WARFARIN SODIUM

REACTIONS (4)
  - Malaise [Not Recovered/Not Resolved]
  - Urine output decreased [Not Recovered/Not Resolved]
  - Headache [Not Recovered/Not Resolved]
  - Condition aggravated [Unknown]

NARRATIVE: CASE EVENT DATE: 201708
